FAERS Safety Report 25503935 (Version 1)
Quarter: 2025Q3

REPORT INFORMATION
  Report Type: Spontaneous
  Country: US (occurrence: US)
  Receive Date: 20250702
  Receipt Date: 20250702
  Transmission Date: 20251020
  Serious: Yes (Hospitalization, Other)
  Sender: Unknown Manufacturer
  Company Number: US-OTTER-US-2025AST000218

PATIENT
  Age: 15 Year
  Sex: Female

DRUGS (2)
  1. METHOTREXATE [Suspect]
     Active Substance: METHOTREXATE
     Indication: Anaplastic large cell lymphoma T- and null-cell types
     Route: 065
  2. VORAXAZE [Suspect]
     Active Substance: GLUCARPIDASE
     Indication: Drug level decreased
     Route: 065

REACTIONS (4)
  - Drug level increased [Recovered/Resolved]
  - Acute kidney injury [Recovered/Resolved]
  - Laboratory test interference [Recovered/Resolved]
  - Off label use [Unknown]
